FAERS Safety Report 9113401 (Version 1)
Quarter: 2013Q1

REPORT INFORMATION
  Report Type: Spontaneous
  Country: US (occurrence: US)
  Receive Date: 20130131
  Receipt Date: 20130131
  Transmission Date: 20140127
  Serious: Yes (Other)
  Sender: FDA-Public Use
  Company Number: US-ASTRAZENECA-2013SE04755

PATIENT
  Age: 48 Year
  Sex: Female
  Weight: 69.9 kg

DRUGS (5)
  1. ARIMIDEX [Suspect]
     Indication: BREAST CANCER
     Route: 048
  2. NOVALDEX [Suspect]
     Route: 048
  3. PRISTIQ [Suspect]
     Indication: DEPRESSION
     Route: 048
  4. PRISTIQ [Suspect]
     Indication: DEPRESSION
     Route: 048
  5. PRISTIQ [Suspect]
     Indication: DEPRESSION
     Route: 048

REACTIONS (7)
  - Hypertension [Not Recovered/Not Resolved]
  - Breast cancer female [Not Recovered/Not Resolved]
  - Dyspnoea [Not Recovered/Not Resolved]
  - Anxiety [Not Recovered/Not Resolved]
  - Heart rate increased [Not Recovered/Not Resolved]
  - Insomnia [Not Recovered/Not Resolved]
  - Depression [Unknown]
